FAERS Safety Report 8586350 (Version 2)
Quarter: 2013Q2

REPORT INFORMATION
  Report Type: Spontaneous
  Country: IT (occurrence: IT)
  Receive Date: 20120530
  Receipt Date: 20130521
  Transmission Date: 20140414
  Serious: Yes (Hospitalization)
  Sender: FDA-Public Use
  Company Number: IT-ROCHE-1072261

PATIENT
  Age: 78 Year
  Sex: Female

DRUGS (1)
  1. MABTHERA [Suspect]
     Indication: NON-HODGKIN^S LYMPHOMA
     Route: 042
     Dates: start: 20120216, end: 20120216

REACTIONS (4)
  - Hypertensive crisis [Recovering/Resolving]
  - Tachyarrhythmia [Recovering/Resolving]
  - Gastrointestinal hypomotility [Recovering/Resolving]
  - Intestinal obstruction [Unknown]
